FAERS Safety Report 7191159-4 (Version None)
Quarter: 2010Q4

REPORT INFORMATION
  Report Type: 
  Country: None (occurrence: None)
  Receive Date: 20101223
  Receipt Date: 20100811
  Transmission Date: 20110411
  Serious: No
  Sender: FDA-Public Use
  Company Number: US-AMGEN-KDL430878

PATIENT

DRUGS (3)
  1. ENBREL [Suspect]
     Indication: RHEUMATOID ARTHRITIS
     Dosage: 50 MG, QWK
     Route: 058
     Dates: start: 20090904
  2. METHOTREXATE [Concomitant]
     Dosage: 2.5 MG, QD
  3. HYDROXYCHLOROQUINE [Concomitant]
     Dosage: 200 MG, QID

REACTIONS (3)
  - POLLAKIURIA [None]
  - RHEUMATOID ARTHRITIS [None]
  - URINARY HESITATION [None]
